FAERS Safety Report 9536113 (Version 1)
Quarter: 2013Q2

REPORT INFORMATION
  Report Type: Spontaneous
  Country: US (occurrence: None)
  Receive Date: 20130507
  Receipt Date: 20130507
  Transmission Date: 20140414
  Serious: No
  Sender: FDA-Public Use
  Company Number: PHEH2012US012402

PATIENT
  Age: 57 Year
  Sex: Female
  Weight: 102 kg

DRUGS (7)
  1. AFINITOR (RAD) [Suspect]
     Indication: BREAST CANCER
     Route: 048
     Dates: start: 20120618
  2. EFFEXOR (VENLAFAXINE HYDROCHLORIDE) UNKNOWN [Concomitant]
  3. EXEMESTANE [Concomitant]
  4. ADVIL (MEFENAMIC ACID) [Concomitant]
  5. FISH OIL [Concomitant]
  6. IRON [Concomitant]
  7. CALCIUM [Concomitant]

REACTIONS (7)
  - Dermatitis acneiform [None]
  - Cough [None]
  - Drug ineffective [None]
  - Dysgeusia [None]
  - Full blood count decreased [None]
  - Weight decreased [None]
  - Decreased appetite [None]
